FAERS Safety Report 5043837-0 (Version None)
Quarter: 2006Q2

REPORT INFORMATION
  Report Type: 
  Country: None (occurrence: None)
  Receive Date: 20060628
  Receipt Date: 20060614
  Transmission Date: 20061013
  Serious: Yes (Congenital Anomaly, Other)
  Sender: FDA-Public Use
  Company Number: B0428538B

PATIENT
  Sex: Male

DRUGS (5)
  1. COMBIVIR [Suspect]
     Indication: HIV INFECTION
     Dosage: TRANSPLACENTARY
     Route: 064
     Dates: start: 20010523
  2. RETROVIR [Suspect]
     Indication: ANTIVIRAL PROPHYLAXIS
     Dosage: TRANSPLACENTARY
     Route: 064
     Dates: start: 20011025
  3. NEVIRAPINE [Suspect]
     Indication: HIV INFECTION
     Dosage: TRANSPLACENTARY
     Route: 064
     Dates: start: 20011016
  4. NELFINAVIR MESYLATE (NELFINAVIR MESYLATE) [Suspect]
     Indication: HIV INFECTION
     Dosage: TRANSPLACENTARY
     Route: 064
     Dates: start: 20011016
  5. STEROID (STEROID) [Suspect]
     Dosage: TRANSPLACENTARY
     Route: 064

REACTIONS (9)
  - APGAR SCORE LOW [None]
  - CAESAREAN SECTION [None]
  - DRUG EXPOSURE DURING PREGNANCY [None]
  - FOETAL ALCOHOL SYNDROME [None]
  - NEONATAL RESPIRATORY DISTRESS SYNDROME [None]
  - PREMATURE BABY [None]
  - PYLORIC STENOSIS [None]
  - RETINOPATHY OF PREMATURITY [None]
  - VENTRICULAR SEPTAL DEFECT [None]
